FAERS Safety Report 5479775-9 (Version None)
Quarter: 2007Q4

REPORT INFORMATION
  Report Type: 
  Country: None (occurrence: None)
  Receive Date: 20071008
  Receipt Date: 20070927
  Transmission Date: 20080405
  Serious: Yes (Hospitalization)
  Sender: FDA-Public Use
  Company Number: US-SANOFI-SYNTHELABO-A03200705779

PATIENT
  Sex: Male

DRUGS (15)
  1. ELOXATIN [Suspect]
     Indication: BILE DUCT CANCER
     Route: 042
     Dates: start: 20070814, end: 20070814
  2. PROCRIT [Concomitant]
     Dosage: UNK
     Route: 065
  3. PLAVIX [Concomitant]
     Dosage: UNK
     Route: 048
  4. PHENESTERIN [Concomitant]
     Dosage: UNK
     Route: 065
  5. ASPIRIN [Concomitant]
     Dosage: UNK
     Route: 065
  6. SPIRIVA [Concomitant]
     Dosage: UNK
     Route: 065
  7. GLUCOPHAGE [Concomitant]
     Dosage: UNK
     Route: 065
  8. ACTOS [Concomitant]
     Dosage: UNK
     Route: 065
  9. PEPCID [Concomitant]
     Dosage: UNK
     Route: 065
  10. UROXATRAL [Concomitant]
     Dosage: UNK
     Route: 048
  11. MUCINEX [Concomitant]
     Dosage: UNK
     Route: 065
  12. LIPITOR [Concomitant]
     Dosage: UNK
     Route: 065
  13. TOPROL-XL [Concomitant]
     Dosage: UNK
     Route: 065
  14. DECADRON [Concomitant]
     Dosage: UNK
     Route: 042
  15. GEMZAR [Suspect]
     Indication: BILE DUCT CANCER
     Dosage: 1 GRAM/M2
     Route: 042
     Dates: start: 20070814, end: 20070814

REACTIONS (5)
  - CRYPTOGENIC ORGANISING PNEUMONIA [None]
  - DYSPNOEA [None]
  - LUNG INFILTRATION [None]
  - OXYGEN SATURATION DECREASED [None]
  - PNEUMOTHORAX [None]
